FAERS Safety Report 7347505-1 (Version None)
Quarter: 2011Q1

REPORT INFORMATION
  Report Type: 
  Country: None (occurrence: None)
  Receive Date: 20110311
  Receipt Date: 20110207
  Transmission Date: 20110831
  Serious: Yes (Hospitalization)
  Sender: FDA-Public Use
  Company Number: US-BAYER-201031547NA

PATIENT
  Sex: Female
  Weight: 64.399 kg

DRUGS (11)
  1. YASMIN [Suspect]
  2. YAZ [Suspect]
     Indication: PREMENSTRUAL SYNDROME
     Dosage: UNK
     Route: 048
     Dates: start: 20070701, end: 20081001
  3. ALBUTEROL [Concomitant]
     Indication: ASTHMA
     Route: 055
  4. ROCEPHIN [Concomitant]
     Indication: URINARY TRACT INFECTION
     Dosage: UNK
     Dates: start: 20081008
  5. PHENERGAN [Concomitant]
     Indication: GASTROENTERITIS
     Dosage: UNK
     Route: 030
     Dates: start: 20090414
  6. CIPRO [Concomitant]
     Indication: GASTROENTERITIS
     Dosage: UNK
     Dates: start: 20090414
  7. SINGULAIR [Concomitant]
     Indication: ASTHMA
     Dosage: DAILY DOSE 10 MG
     Route: 048
  8. HYDROCODONE [Suspect]
     Dosage: UNK
     Dates: start: 20080801
  9. YAZ [Suspect]
     Indication: CONTRACEPTION
  10. CIPRO [Concomitant]
     Indication: URINARY TRACT INFECTION
     Dosage: UNK
     Dates: start: 20081008
  11. ZITHROMAX [Concomitant]
     Indication: GASTROENTERITIS

REACTIONS (19)
  - CHOLECYSTITIS CHRONIC [None]
  - DIARRHOEA [None]
  - ERUCTATION [None]
  - ABDOMINAL PAIN UPPER [None]
  - PALLOR [None]
  - MENSTRUATION IRREGULAR [None]
  - VOMITING [None]
  - RETCHING [None]
  - DEHYDRATION [None]
  - NAUSEA [None]
  - HEADACHE [None]
  - VAGINAL HAEMORRHAGE [None]
  - URINARY TRACT INFECTION [None]
  - APHAGIA [None]
  - BILIARY COLIC [None]
  - CHOLESTEROSIS [None]
  - CONSTIPATION [None]
  - ABDOMINAL DISTENSION [None]
  - GASTROINTESTINAL PAIN [None]
